FAERS Safety Report 25558428 (Version 2)
Quarter: 2025Q3

REPORT INFORMATION
  Report Type: Spontaneous
  Country: US (occurrence: US)
  Receive Date: 20250715
  Receipt Date: 20250715
  Transmission Date: 20251020
  Serious: No
  Sender: NOVO NORDISK
  Company Number: US-NOVOPROD-1434115

PATIENT
  Age: 70 Year
  Sex: Male

DRUGS (2)
  1. OZEMPIC [Suspect]
     Active Substance: SEMAGLUTIDE
     Indication: Type 2 diabetes mellitus
     Dosage: 0.25 MG, QW
     Route: 058
     Dates: start: 20250218
  2. OZEMPIC [Suspect]
     Active Substance: SEMAGLUTIDE
     Indication: Type 2 diabetes mellitus

REACTIONS (5)
  - Weight decreased [Unknown]
  - Illness [Unknown]
  - Emergency care [Not Recovered/Not Resolved]
  - Inappropriate schedule of product administration [Unknown]
  - Product label confusion [Unknown]

NARRATIVE: CASE EVENT DATE: 20250417
